FAERS Safety Report 6958705-4 (Version None)
Quarter: 2010Q3

REPORT INFORMATION
  Report Type: 
  Country: None (occurrence: None)
  Receive Date: 20100831
  Receipt Date: 20100817
  Transmission Date: 20110219
  Serious: Yes (Other)
  Sender: FDA-Public Use
  Company Number: PHHY2010US51190

PATIENT
  Age: 88 Year
  Sex: Female

DRUGS (1)
  1. RECLAST [Suspect]
     Dosage: UNK

REACTIONS (4)
  - BONE DENSITY ABNORMAL [None]
  - DRUG INEFFECTIVE [None]
  - INFUSION SITE SWELLING [None]
  - OSTEOGENESIS IMPERFECTA [None]
